FAERS Safety Report 7813847-6 (Version None)
Quarter: 2011Q4

REPORT INFORMATION
  Report Type: 
  Country: None (occurrence: None)
  Receive Date: 20111011
  Receipt Date: 20111006
  Transmission Date: 20120403
  Serious: Yes (Hospitalization, Other)
  Sender: FDA-Public Use
  Company Number: 2009SP017154

PATIENT
  Age: 23 Year
  Sex: Female
  Weight: 47.6277 kg

DRUGS (1)
  1. NUVARING [Suspect]
     Indication: CONTRACEPTION
     Dosage: 1 DF;QM;VAG
     Route: 067
     Dates: start: 20051111, end: 20070301

REACTIONS (29)
  - SUPERIOR SAGITTAL SINUS THROMBOSIS [None]
  - EMOTIONAL DISORDER [None]
  - BLOOD PRESSURE DECREASED [None]
  - DISTURBANCE IN ATTENTION [None]
  - CEREBROVASCULAR ACCIDENT [None]
  - PHOTOPHOBIA [None]
  - MENINGISM [None]
  - INITIAL INSOMNIA [None]
  - PAPILLOMA VIRAL INFECTION [None]
  - VOMITING [None]
  - NAUSEA [None]
  - BLOOD GLUCOSE INCREASED [None]
  - METAPLASIA [None]
  - UTERINE CERVICAL SQUAMOUS METAPLASIA [None]
  - INTRACRANIAL VENOUS SINUS THROMBOSIS [None]
  - PAIN [None]
  - HEADACHE [None]
  - VAGINITIS BACTERIAL [None]
  - VISION BLURRED [None]
  - INFLUENZA LIKE ILLNESS [None]
  - WHITE BLOOD CELL COUNT INCREASED [None]
  - SUBARACHNOID HAEMORRHAGE [None]
  - CEREBRAL THROMBOSIS [None]
  - URINARY TRACT INFECTION [None]
  - MEMORY IMPAIRMENT [None]
  - DEPRESSION [None]
  - ANOGENITAL WARTS [None]
  - DERMATITIS [None]
  - LOSS OF CONSCIOUSNESS [None]
